FAERS Safety Report 8547410-9 (Version None)
Quarter: 2012Q3

REPORT INFORMATION
  Report Type: 
  Country: None (occurrence: None)
  Receive Date: 20120727
  Receipt Date: 20120416
  Transmission Date: 20120928
  Serious: No
  Sender: FDA-Public Use
  Company Number: US-ASTRAZENECA-2012SE23600

PATIENT
  Age: 54 Year
  Sex: Female
  Weight: 83.9 kg

DRUGS (6)
  1. KLONOPIN [Concomitant]
  2. TYLENOL PM [Concomitant]
  3. SEROQUEL [Suspect]
     Indication: BIPOLAR DISORDER
     Route: 048
     Dates: start: 20110201
  4. LEVOTHYROXINE SODIUM [Concomitant]
     Indication: THYROID DISORDER
  5. SEROQUEL [Suspect]
     Indication: INSOMNIA
     Route: 048
     Dates: start: 20110201
  6. CELEXA [Concomitant]

REACTIONS (6)
  - INTENTIONAL DRUG MISUSE [None]
  - INSOMNIA [None]
  - APHAGIA [None]
  - WEIGHT DECREASED [None]
  - GENERAL PHYSICAL HEALTH DETERIORATION [None]
  - WEIGHT INCREASED [None]
